FAERS Safety Report 9546478 (Version 6)
Quarter: 2014Q1

REPORT INFORMATION
  Report Type: Spontaneous
  Country: IT (occurrence: IT)
  Receive Date: 20130923
  Receipt Date: 20140228
  Transmission Date: 20141002
  Serious: Yes (Hospitalization)
  Sender: FDA-Public Use
  Company Number: IT-ROCHE-1278313

PATIENT
  Age: 72 Year
  Sex: Male
  Weight: 66 kg

DRUGS (7)
  1. HERCEPTIN [Suspect]
     Indication: METASTATIC GASTRIC CANCER
     Route: 042
     Dates: start: 20130911, end: 20130911
  2. LASIX [Concomitant]
     Indication: DIURETIC THERAPY
     Route: 048
  3. OLMEGAN [Concomitant]
     Indication: HYPERTENSION
     Route: 065
  4. CISPLATIN [Concomitant]
  5. 5-FU [Concomitant]
  6. FUROSEMIDE [Concomitant]
     Dosage: PERIOD OF THERAPY: 6 MONTHS
     Route: 065
  7. HYDROCHLOROTHIAZIDE/OLMESARTAN MEDOXOMIL [Concomitant]

REACTIONS (2)
  - Syncope [Recovered/Resolved]
  - Arrhythmia [Recovered/Resolved]
